FAERS Safety Report 9112394 (Version 1)
Quarter: 2013Q1

REPORT INFORMATION
  Report Type: Spontaneous
  Country: US (occurrence: US)
  Receive Date: 20130219
  Receipt Date: 20130219
  Transmission Date: 20140127
  Serious: Yes (Other)
  Sender: FDA-Public Use
  Company Number: US-BRISTOL-MYERS SQUIBB COMPANY-16710873

PATIENT
  Sex: Female

DRUGS (1)
  1. ORENCIA [Suspect]
     Dosage: RECEIVED 2 YRS AGO ALSO
     Route: 042

REACTIONS (4)
  - Lung neoplasm malignant [Unknown]
  - Dyspnoea [Unknown]
  - Rhinorrhoea [Unknown]
  - Local swelling [Unknown]
